FAERS Safety Report 4398015-5 (Version None)
Quarter: 2004Q3

REPORT INFORMATION
  Report Type: 
  Country: None (occurrence: None)
  Receive Date: 20040713
  Receipt Date: 20040713
  Transmission Date: 20050211
  Serious: Yes (Other)
  Sender: FDA-Public Use
  Company Number: None

PATIENT
  Age: 50 Year
  Sex: Male

DRUGS (1)
  1. MYLAN TRANSDERM PATCHES NITROGLYCERIN [Suspect]
     Indication: ANGINA PECTORIS
     Dosage: QD TRANSDERM

REACTIONS (2)
  - APPLICATION SITE DERMATITIS [None]
  - PHARMACEUTICAL PRODUCT COMPLAINT [None]
